FAERS Safety Report 8146481-1 (Version None)
Quarter: 2012Q1

REPORT INFORMATION
  Report Type: 
  Country: None (occurrence: None)
  Receive Date: 20120217
  Receipt Date: 20120210
  Transmission Date: 20120608
  Serious: Yes (Life-Threatening)
  Sender: FDA-Public Use
  Company Number: JP-ROCHE-780905

PATIENT
  Age: 47 Year
  Sex: Male

DRUGS (22)
  1. DOGMATYL [Concomitant]
     Dosage: DOSE FORM REPORTED: PERORAL AGENT.
     Route: 048
  2. PRAVASTATIN SODIUM [Concomitant]
     Indication: PROPHYLAXIS
     Route: 048
  3. LASIX [Concomitant]
     Indication: PROPHYLAXIS
     Route: 048
  4. ALLOPURINOL [Concomitant]
     Route: 048
     Dates: start: 20030131, end: 20050714
  5. MYCOPHENOLATE MOFETIL (CELLCEPT) [Suspect]
     Indication: PROPHYLAXIS AGAINST TRANSPLANT REJECTION
     Route: 048
  6. NEORAL [Concomitant]
     Indication: PROPHYLAXIS AGAINST TRANSPLANT REJECTION
     Dosage: 180-230 MG
     Route: 048
  7. FAMOTIDINE [Concomitant]
     Indication: PROPHYLAXIS
     Route: 048
     Dates: start: 20030131, end: 20060518
  8. VOGLIBOSE [Concomitant]
     Route: 048
     Dates: start: 20050714
  9. SULFAMETHOXAZOLE AND TRIMETHOPRIM [Concomitant]
     Indication: PROPHYLAXIS
     Route: 048
  10. GOODMIN [Concomitant]
     Indication: PROPHYLAXIS
     Route: 048
  11. ASPIRIN [Concomitant]
     Indication: PROPHYLAXIS
     Route: 048
  12. ORTHOCLONE OKT3 [Concomitant]
     Indication: PROPHYLAXIS AGAINST TRANSPLANT REJECTION
     Route: 042
  13. SOLU-MEDROL [Concomitant]
     Indication: PROPHYLAXIS AGAINST TRANSPLANT REJECTION
     Route: 041
  14. MYCOPHENOLATE MOFETIL (CELLCEPT) [Suspect]
     Route: 048
  15. RENIVACE [Concomitant]
     Indication: PROPHYLAXIS
     Route: 048
  16. NORVASC [Concomitant]
     Indication: PROPHYLAXIS
     Route: 048
  17. SELBEX [Concomitant]
     Indication: PROPHYLAXIS
     Route: 048
  18. FERROUS CITRATE [Concomitant]
     Route: 048
  19. URINORM [Concomitant]
     Route: 048
     Dates: start: 20050715
  20. SODIUM BICARBONATE [Concomitant]
     Route: 048
     Dates: start: 20050714
  21. SINLESTAL [Concomitant]
     Indication: PROPHYLAXIS
     Route: 048
     Dates: start: 20030131, end: 20060601
  22. OMEPRAZOLE [Concomitant]
     Indication: PROPHYLAXIS
     Route: 048

REACTIONS (5)
  - NASOPHARYNGITIS [None]
  - DIARRHOEA [None]
  - SLEEP APNOEA SYNDROME [None]
  - PYREXIA [None]
  - TRICUSPID VALVE INCOMPETENCE [None]
